FAERS Safety Report 8295928-9 (Version None)
Quarter: 2012Q2

REPORT INFORMATION
  Report Type: 
  Country: None (occurrence: None)
  Receive Date: 20120418
  Receipt Date: 20120404
  Transmission Date: 20120825
  Serious: Yes (Other)
  Sender: FDA-Public Use
  Company Number: US-JNJFOC-20120402677

PATIENT
  Sex: Female

DRUGS (2)
  1. ZYRTEC [Suspect]
     Route: 048
  2. ZYRTEC [Suspect]
     Indication: PRODUCT USED FOR UNKNOWN INDICATION
     Dosage: ZYRTEC 10 MG IR TABLET BONUS 45+15 USA 300450204660 0045020466 USA
     Route: 048

REACTIONS (1)
  - ANGER [None]
